FAERS Safety Report 8925324 (Version 1)
Quarter: 2012Q4

REPORT INFORMATION
  Report Type: 
  Country: DE (occurrence: DE)
  Receive Date: 20121126
  Receipt Date: 20121126
  Transmission Date: 20130627
  Serious: Yes (Hospitalization)
  Sender: FDA-Public Use
  Company Number: DE-PFIZER INC-2012292694

PATIENT
  Age: 59 Year
  Sex: Male
  Weight: 98.6 kg

DRUGS (13)
  1. GENOTROPIN [Suspect]
     Dosage: 0.2 mg, 1x/day, 7 injections/week
     Route: 058
     Dates: start: 19990909
  2. TESTOSTERONE [Concomitant]
     Indication: LUTEINIZING HORMONE DEFICIENCY
     Dosage: UNK
     Dates: start: 19970715
  3. TESTOSTERONE [Concomitant]
     Indication: FOLLICLE-STIMULATING HORMONE DEFICIENCY
  4. TESTOSTERONE [Concomitant]
     Indication: TESTICULAR HYPOGONADISM
  5. EUTHYROX [Concomitant]
     Dosage: UNK
     Dates: start: 19971209
  6. DESMOPRESSIN [Concomitant]
     Indication: ADH DECREASED
     Dosage: UNK
     Dates: start: 20030509
  7. RANITIC [Concomitant]
     Indication: GASTRIC DISORDER
     Dosage: UNK
     Dates: start: 19980916
  8. ANDRODERM [Concomitant]
     Indication: LUTEINIZING HORMONE DEFICIENCY
     Dosage: UNK
     Dates: start: 20000701
  9. ANDRODERM [Concomitant]
     Indication: FOLLICLE-STIMULATING HORMONE DEFICIENCY
  10. ANDRODERM [Concomitant]
     Indication: TESTICULAR HYPOGONADISM
  11. LEVOTHYROXINE [Concomitant]
     Indication: THYROID DISORDER
     Dosage: UNK
     Dates: start: 19970715
  12. LEVOTHYROXINE [Concomitant]
     Indication: PRIMARY HYPOTHYROIDISM
  13. HYDROCORTISONE [Concomitant]
     Indication: ACTH DECREASED
     Dosage: UNK
     Dates: start: 19970715

REACTIONS (1)
  - Surgery [Unknown]
